FAERS Safety Report 7371541-2 (Version None)
Quarter: 2011Q1

REPORT INFORMATION
  Report Type: 
  Country: None (occurrence: None)
  Receive Date: 20110322
  Receipt Date: 20110322
  Transmission Date: 20110831
  Serious: Yes (Other)
  Sender: FDA-Public Use
  Company Number: None

PATIENT
  Sex: Male
  Weight: 30.391 kg

DRUGS (2)
  1. LAMOTRIGINE [Suspect]
     Indication: COMPLEX PARTIAL SEIZURES
     Dosage: 50MG BID PO ABOUT 2 WEEKS PRIOR AE
     Route: 048
  2. LAMICTAL [Concomitant]

REACTIONS (4)
  - ANGER [None]
  - COMPLEX PARTIAL SEIZURES [None]
  - CONVULSION [None]
  - PRODUCT SUBSTITUTION ISSUE [None]
